FAERS Safety Report 20683401 (Version 2)
Quarter: 2022Q2

REPORT INFORMATION
  Report Type: Spontaneous
  Country: JP (occurrence: JP)
  Receive Date: 20220407
  Receipt Date: 20220630
  Transmission Date: 20220721
  Serious: No
  Sender: FDA-Public Use
  Company Number: JP-GLAXOSMITHKLINE-JP2022JPN058391

PATIENT

DRUGS (7)
  1. SOTROVIMAB [Suspect]
     Active Substance: SOTROVIMAB
     Indication: COVID-19
     Dosage: 500 MG
     Route: 041
     Dates: start: 20220331, end: 20220331
  2. FLUTICASONE FUROATE [Suspect]
     Active Substance: FLUTICASONE FUROATE
     Indication: Nasal congestion
     Dosage: 110 ?G
     Dates: start: 20220331
  3. DEXTROMETHORPHAN HYDROBROMIDE [Suspect]
     Active Substance: DEXTROMETHORPHAN HYDROBROMIDE
     Indication: Cough
     Dosage: 45 MG
     Route: 048
     Dates: start: 20220330, end: 20220406
  4. CARBOCYSTEINE [Suspect]
     Active Substance: CARBOCYSTEINE
     Indication: Sputum retention
     Dosage: 1500 MG
     Route: 048
     Dates: start: 20220331, end: 20220406
  5. SODIUM GUALENATE [Suspect]
     Active Substance: SODIUM GUALENATE
     Indication: Throat irritation
     Dosage: UNK
     Dates: start: 20220331
  6. DEQUALINIUM CHLORIDE [Suspect]
     Active Substance: DEQUALINIUM CHLORIDE
     Indication: Throat irritation
     Dosage: 0.25 MG
     Dates: start: 20220331
  7. SODIUM FERROUS CITRATE [Suspect]
     Active Substance: SODIUM FERROUS CITRATE
     Indication: Anaemia
     Dosage: 100 MG
     Route: 048
     Dates: start: 20220402, end: 20220412

REACTIONS (2)
  - Exposure during pregnancy [Unknown]
  - Live birth [Unknown]
